FAERS Safety Report 24591472 (Version 2)
Quarter: 2024Q4

REPORT INFORMATION
  Report Type: Spontaneous
  Country: CN (occurrence: CN)
  Receive Date: 20241108
  Receipt Date: 20241108
  Transmission Date: 20250114
  Serious: Yes (Other)
  Sender: RANBAXY
  Company Number: CN-SUN PHARMACEUTICAL INDUSTRIES LTD-2024R1-463053

PATIENT
  Age: 29 Year
  Sex: Male

DRUGS (3)
  1. CLARITHROMYCIN [Interacting]
     Active Substance: CLARITHROMYCIN
     Indication: Otitis media
     Dosage: 0.25 GRAM, BID
     Route: 048
  2. QUETIAPINE [Interacting]
     Active Substance: QUETIAPINE
     Indication: Bipolar disorder
     Dosage: 0.2 GRAM, BID
     Route: 065
  3. VALPROATE MAGNESIUM [Concomitant]
     Active Substance: VALPROATE MAGNESIUM
     Indication: Bipolar disorder
     Dosage: 0.5 GRAM, BID
     Route: 065

REACTIONS (4)
  - Drug level increased [Unknown]
  - Lethargy [Unknown]
  - Drug interaction [Unknown]
  - Somnolence [Unknown]
